FAERS Safety Report 5661136 (Version 6)
Quarter: 2018Q4

REPORT INFORMATION
  Report Type: Spontaneous
  Country: IT (occurrence: IT)
  Receive Date: 20041109
  Receipt Date: 20181203
  Transmission Date: 20190205
  Serious: Yes (Death, Life-Threatening, Hospitalization, Other)
  Sender: FDA-Public Use
  Company Number: PHBS2004IT14871

PATIENT
  Age: 79 Year
  Sex: Male

DRUGS (7)
  1. GARDENALE [Suspect]
     Active Substance: PHENOBARBITAL
     Indication: FOCAL DYSCOGNITIVE SEIZURES
     Dosage: 100 MG, QD
     Route: 048
     Dates: start: 20041015
  2. GARDENALE [Suspect]
     Active Substance: PHENOBARBITAL
     Dosage: 25 MG, QD
     Route: 048
  3. TETANUS GAMMA GLOBULIN [Suspect]
     Active Substance: HUMAN CLOSTRIDIUM TETANI TOXOID IMMUNE GLOBULIN
     Indication: PROPHYLAXIS
     Dosage: 500 UI/ML/ONCE/SINGLE
     Route: 030
     Dates: start: 20041021, end: 20041021
  4. GARDENALE [Suspect]
     Active Substance: PHENOBARBITAL
     Dosage: 50 MG, QD
     Route: 048
  5. TOLEP [Suspect]
     Active Substance: OXCARBAZEPINE
     Indication: PARTIAL SEIZURES
     Dosage: 150 MG, BID
     Route: 048
     Dates: start: 20041020
  6. TOLEP [Suspect]
     Active Substance: OXCARBAZEPINE
     Dosage: 300 MG, BID
     Route: 048
  7. GARDENALE [Suspect]
     Active Substance: PHENOBARBITAL
     Dosage: 50 MG, QD
     Route: 048
     Dates: start: 20041025

REACTIONS (11)
  - Drug eruption [Fatal]
  - Skin abrasion [Fatal]
  - Toxic epidermal necrolysis [Fatal]
  - Skin exfoliation [Fatal]
  - Seborrhoeic keratosis [Fatal]
  - Rash [Fatal]
  - Erythema [Fatal]
  - Groin abscess [Fatal]
  - Palmoplantar pustulosis [Fatal]
  - Pyrexia [Fatal]
  - Tinea versicolour [Fatal]

NARRATIVE: CASE EVENT DATE: 20041020
